FAERS Safety Report 19956614 (Version 1)
Quarter: 2021Q4

REPORT INFORMATION
  Report Type: Spontaneous
  Country: FR (occurrence: FR)
  Receive Date: 20211014
  Receipt Date: 20211014
  Transmission Date: 20220303
  Serious: Yes (Other)
  Sender: FDA-Public Use
  Company Number: FR-TEVA-2021-FR-1965383

PATIENT
  Age: 90 Year
  Sex: Female

DRUGS (1)
  1. BUDESONIDE [Suspect]
     Active Substance: BUDESONIDE
     Dosage: 1 MG/2 ML, SINGLE DOSE

REACTIONS (2)
  - Asthmatic crisis [Not Recovered/Not Resolved]
  - Liquid product physical issue [Unknown]
